FAERS Safety Report 7104942-8 (Version None)
Quarter: 2010Q4

REPORT INFORMATION
  Report Type: 
  Country: None (occurrence: None)
  Receive Date: 20101116
  Receipt Date: 20101111
  Transmission Date: 20110411
  Serious: Yes (Life-Threatening, Hospitalization, Other)
  Sender: FDA-Public Use
  Company Number: JP-BRACCO-003326

PATIENT
  Sex: Male

DRUGS (8)
  1. IOPAMIDOL [Suspect]
     Indication: COMPUTERISED TOMOGRAM
     Route: 042
     Dates: start: 20100323, end: 20100323
  2. IOPAMIDOL [Suspect]
     Indication: PANCREATITIS NECROTISING
     Route: 042
     Dates: start: 20100323, end: 20100323
  3. CONTRAST MEDIA [Concomitant]
     Indication: ANGIOGRAM
     Route: 042
  4. IOPAMIDOL [Concomitant]
     Route: 042
     Dates: start: 20091102, end: 20091102
  5. FOIPAN [Concomitant]
     Indication: PANCREATITIS
     Route: 048
     Dates: start: 20070401
  6. ARTIST [Concomitant]
     Indication: HYPERTENSION
     Route: 048
     Dates: start: 20070807
  7. MEVALOTIN [Concomitant]
     Indication: HYPERLIPIDAEMIA
     Route: 048
     Dates: start: 20080310
  8. AMLODIPINE [Concomitant]
     Indication: HYPERTENSION
     Route: 048
     Dates: start: 20070331

REACTIONS (6)
  - ABDOMINAL PAIN [None]
  - ACUTE RESPIRATORY DISTRESS SYNDROME [None]
  - CARDIAC ARREST [None]
  - CARDIAC FAILURE ACUTE [None]
  - DIARRHOEA [None]
  - SHOCK [None]
